FAERS Safety Report 5706015-5 (Version None)
Quarter: 2008Q2

REPORT INFORMATION
  Report Type: 
  Country: None (occurrence: None)
  Receive Date: 20080415
  Receipt Date: 20080407
  Transmission Date: 20081010
  Serious: Yes (Other)
  Sender: FDA-Public Use
  Company Number: GB-PFIZER INC-2008031451

PATIENT
  Age: 48 Year
  Weight: 52 kg

DRUGS (4)
  1. CHAMPIX [Suspect]
     Indication: SMOKING CESSATION THERAPY
     Route: 048
     Dates: start: 20080207, end: 20080325
  2. VALPROATE SODIUM [Concomitant]
     Route: 048
  3. FYBOGEL MEBEVERINE [Concomitant]
     Route: 048
  4. TRAZODONE HCL [Concomitant]
     Route: 048

REACTIONS (1)
  - EPILEPSY [None]
